FAERS Safety Report 21208850 (Version 2)
Quarter: 2022Q3

REPORT INFORMATION
  Report Type: Report from Study
  Country: US (occurrence: US)
  Receive Date: 20220812
  Receipt Date: 20220914
  Transmission Date: 20221026
  Serious: No
  Sender: FDA-Public Use
  Company Number: US-NOVARTISTESTPH-NVSC2022US182838

PATIENT
  Age: 51 Year
  Sex: Male

DRUGS (3)
  1. KESIMPTA [Suspect]
     Active Substance: OFATUMUMAB
     Indication: Multiple sclerosis
     Dosage: 20 MG, QMO
     Route: 058
     Dates: start: 202207
  2. AMPYRA [Concomitant]
     Active Substance: DALFAMPRIDINE
     Indication: Gait disturbance
     Dosage: UNK
     Route: 065
     Dates: start: 202208
  3. AMPYRA [Concomitant]
     Active Substance: DALFAMPRIDINE
     Indication: Balance disorder

REACTIONS (1)
  - Fall [Unknown]

NARRATIVE: CASE EVENT DATE: 20220728
